FAERS Safety Report 6167383-6 (Version None)
Quarter: 2009Q2

REPORT INFORMATION
  Report Type: 
  Country: None (occurrence: None)
  Receive Date: 20090424
  Receipt Date: 20090416
  Transmission Date: 20091009
  Serious: Yes (Other)
  Sender: FDA-Public Use
  Company Number: ES-ABBOTT-09P-144-0568695-00

PATIENT
  Age: 28 Year
  Sex: Male

DRUGS (2)
  1. HUMIRA [Suspect]
     Indication: PSORIASIS
     Route: 058
     Dates: start: 20080602, end: 20090406
  2. IBUPROFEN [Suspect]
     Indication: HEADACHE
     Route: 048
     Dates: end: 20090318

REACTIONS (6)
  - BLOOD CHOLESTEROL INCREASED [None]
  - BLOOD CREATINE PHOSPHOKINASE INCREASED [None]
  - DIARRHOEA [None]
  - IRON DEFICIENCY [None]
  - TRANSAMINASES INCREASED [None]
  - VOMITING [None]
